FAERS Safety Report 14476001 (Version 5)
Quarter: 2019Q2

REPORT INFORMATION
  Report Type: Spontaneous
  Country: US (occurrence: US)
  Receive Date: 20180201
  Receipt Date: 20190529
  Transmission Date: 20190711
  Serious: Yes (Hospitalization)
  Sender: FDA-Public Use
  Company Number: US-ACTELION-A-US2018-166849

PATIENT
  Age: 58 Year
  Sex: Female
  Weight: 68.93 kg

DRUGS (22)
  1. PERCOCET [Concomitant]
     Active Substance: ACETAMINOPHEN\OXYCODONE HYDROCHLORIDE
  2. MIDODRINE [Concomitant]
     Active Substance: MIDODRINE
  3. ADCIRCA [Concomitant]
     Active Substance: TADALAFIL
     Dosage: UNK
     Route: 048
  4. DIGOXIN. [Concomitant]
     Active Substance: DIGOXIN
  5. VELETRI [Suspect]
     Active Substance: EPOPROSTENOL
     Dosage: UNK
     Route: 042
  6. PANTOPRAZOLE [Concomitant]
     Active Substance: PANTOPRAZOLE
  7. PEDIA-LAX STOOL SOFTENER [Concomitant]
  8. FERROUS SULFATE. [Concomitant]
     Active Substance: FERROUS SULFATE
  9. OPSUMIT [Suspect]
     Active Substance: MACITENTAN
     Indication: PULMONARY HYPERTENSION
     Dosage: 10 MG, QD
     Route: 048
     Dates: start: 20150929
  10. COUMADIN [Concomitant]
     Active Substance: WARFARIN SODIUM
  11. ELIQUIS [Concomitant]
     Active Substance: APIXABAN
  12. TORSEMIDE. [Concomitant]
     Active Substance: TORSEMIDE
  13. FLUTICASONE. [Concomitant]
     Active Substance: FLUTICASONE
  14. FLOLAN [Concomitant]
     Active Substance: EPOPROSTENOL SODIUM
     Indication: CLOSTRIDIUM DIFFICILE INFECTION
     Dosage: UNK
     Route: 042
  15. CALCIUM CARBONATE W/COLECALCIFEROL [Concomitant]
     Active Substance: CALCIUM CARBONATE\CHOLECALCIFEROL
  16. AMIODARONE [Concomitant]
     Active Substance: AMIODARONE
  17. CALCITRIOL. [Concomitant]
     Active Substance: CALCITRIOL
  18. VELETRI [Suspect]
     Active Substance: EPOPROSTENOL
     Indication: PULMONARY HYPERTENSION
     Dosage: 32 NG/KG, PER MIN
     Route: 042
  19. PRADAXA [Concomitant]
     Active Substance: DABIGATRAN ETEXILATE MESYLATE
  20. OXYGEN. [Concomitant]
     Active Substance: OXYGEN
     Dosage: 5 L/MIN
  21. KLOR-CON [Concomitant]
     Active Substance: POTASSIUM CHLORIDE
  22. LEVOTHYROXINE. [Concomitant]
     Active Substance: LEVOTHYROXINE

REACTIONS (14)
  - Atrial fibrillation [Unknown]
  - Leukocytosis [Recovering/Resolving]
  - Pyrexia [Unknown]
  - Orthostatic hypotension [Unknown]
  - Dyspnoea [Unknown]
  - Nausea [Unknown]
  - Sepsis [Unknown]
  - Diarrhoea [Recovering/Resolving]
  - Infection [Unknown]
  - Product dose omission [Unknown]
  - Syncope [Unknown]
  - Clostridium difficile colitis [Recovering/Resolving]
  - Dyspnoea exertional [Not Recovered/Not Resolved]
  - Arrhythmia [Unknown]

NARRATIVE: CASE EVENT DATE: 20190502
